FAERS Safety Report 23069725 (Version 1)
Quarter: 2023Q4

REPORT INFORMATION
  Report Type: Spontaneous
  Country: US (occurrence: US)
  Receive Date: 20231016
  Receipt Date: 20231016
  Transmission Date: 20240110
  Serious: Yes (Death, Hospitalization)
  Sender: FDA-Public Use
  Company Number: US-PFIZER INC-PV202300166477

PATIENT
  Age: 65 Year
  Sex: Female

DRUGS (6)
  1. MEROPENEM [Suspect]
     Active Substance: MEROPENEM
     Indication: Nocardiosis
     Dosage: UNK
  2. LINEZOLID [Suspect]
     Active Substance: LINEZOLID
     Indication: Nocardiosis
     Dosage: UNK
  3. VANCOMYCIN HYDROCHLORIDE [Suspect]
     Active Substance: VANCOMYCIN HYDROCHLORIDE
     Dosage: UNK
     Route: 042
  4. CEFEPIME HYDROCHLORIDE [Suspect]
     Active Substance: CEFEPIME HYDROCHLORIDE
     Dosage: UNK
  5. BACTRIM [Suspect]
     Active Substance: SULFAMETHOXAZOLE\TRIMETHOPRIM
     Indication: Nocardiosis
     Dosage: UNK
  6. AMIKACIN [Suspect]
     Active Substance: AMIKACIN
     Indication: Nocardiosis
     Dosage: UNK

REACTIONS (2)
  - Drug ineffective for unapproved indication [Fatal]
  - Off label use [Unknown]
